FAERS Safety Report 8239762-4 (Version None)
Quarter: 2012Q1

REPORT INFORMATION
  Report Type: 
  Country: None (occurrence: None)
  Receive Date: 20120327
  Receipt Date: 20120327
  Transmission Date: 20120608
  Serious: Yes (Life-Threatening, Hospitalization)
  Sender: FDA-Public Use
  Company Number: None

PATIENT
  Age: 33 Year
  Sex: Male
  Weight: 106 kg

DRUGS (1)
  1. TRAZODONE HCL [Suspect]
     Indication: SLEEP DISORDER
     Dosage: 50 MG AT BEDTIME PO
     Route: 048
     Dates: start: 20100913, end: 20101005

REACTIONS (3)
  - ALCOHOL USE [None]
  - SUICIDAL IDEATION [None]
  - OVERDOSE [None]
